FAERS Safety Report 19597909 (Version 2)
Quarter: 2021Q4

REPORT INFORMATION
  Report Type: Report from Study
  Country: US (occurrence: US)
  Receive Date: 20210723
  Receipt Date: 20211124
  Transmission Date: 20220303
  Serious: Yes (Hospitalization, Other)
  Sender: FDA-Public Use
  Company Number: US-ABBVIE-21K-163-3999440-00

PATIENT
  Sex: Female

DRUGS (2)
  1. IMBRUVICA [Suspect]
     Active Substance: IBRUTINIB
     Indication: Product used for unknown indication
     Route: 048
     Dates: start: 202106, end: 20210702
  2. IMBRUVICA [Suspect]
     Active Substance: IBRUTINIB
     Route: 048
     Dates: start: 20211109

REACTIONS (9)
  - Lymphocyte adoptive therapy [Recovered/Resolved]
  - Hospitalisation [Recovered/Resolved]
  - Dry skin [Unknown]
  - Alopecia [Unknown]
  - Madarosis [Unknown]
  - Nausea [Recovered/Resolved]
  - Choking sensation [Recovered/Resolved]
  - Lymphadenopathy [Recovered/Resolved]
  - Retching [Recovered/Resolved]

NARRATIVE: CASE EVENT DATE: 20210101
